FAERS Safety Report 15307234 (Version 7)
Quarter: 2019Q2

REPORT INFORMATION
  Report Type: Spontaneous
  Country: US (occurrence: US)
  Receive Date: 20180822
  Receipt Date: 20190531
  Transmission Date: 20190711
  Serious: Yes (Other)
  Sender: FDA-Public Use
  Company Number: US-GLAXOSMITHKLINE-US2018GSK151911

PATIENT
  Sex: Male

DRUGS (6)
  1. PREVACID [Suspect]
     Active Substance: LANSOPRAZOLE
     Indication: GASTRIC DISORDER
     Dosage: UNK
     Route: 065
  2. ESOMEPRAZOLE. [Suspect]
     Active Substance: ESOMEPRAZOLE MAGNESIUM
     Indication: GASTRIC DISORDER
     Dosage: UNK
     Route: 065
  3. LANSOPRAZOLE. [Suspect]
     Active Substance: LANSOPRAZOLE
     Indication: GASTRIC DISORDER
     Dosage: UNK
     Route: 065
  4. OMEPRAZOLE. [Suspect]
     Active Substance: OMEPRAZOLE
     Indication: GASTRIC DISORDER
     Dosage: 20 MG, BID
     Route: 065
  5. PREVACID [Suspect]
     Active Substance: LANSOPRAZOLE
     Indication: GASTRIC DISORDER
     Dosage: UNK
     Route: 065
  6. PANTOPRAZOLE [Suspect]
     Active Substance: PANTOPRAZOLE
     Indication: GASTRIC DISORDER
     Dosage: 40 MG, UNK
     Route: 065

REACTIONS (21)
  - Renal injury [Unknown]
  - Dialysis [Unknown]
  - Diabetic nephropathy [Unknown]
  - IgA nephropathy [Unknown]
  - Proteinuria [Unknown]
  - Haematuria [Unknown]
  - Hypertensive nephropathy [Unknown]
  - Microalbuminuria [Unknown]
  - Nephrolithiasis [Unknown]
  - Nephrosclerosis [Unknown]
  - Renal impairment [Unknown]
  - Pollakiuria [Unknown]
  - Acute kidney injury [Unknown]
  - Chronic kidney disease [Unknown]
  - Renal failure [Unknown]
  - Renal tubular necrosis [Unknown]
  - Nephropathy [Unknown]
  - Chronic kidney disease-mineral and bone disorder [Unknown]
  - Nocturia [Unknown]
  - Kidney small [Unknown]
  - Renal disorder [Unknown]
